FAERS Safety Report 21065408 (Version 4)
Quarter: 2022Q4

REPORT INFORMATION
  Report Type: Spontaneous
  Country: US (occurrence: US)
  Receive Date: 20220711
  Receipt Date: 20221110
  Transmission Date: 20230112
  Serious: No
  Sender: FDA-Public Use
  Company Number: US-BRISTOL-MYERS SQUIBB COMPANY-2022-071669

PATIENT
  Age: 85 Year
  Sex: Female

DRUGS (1)
  1. REVLIMID [Suspect]
     Active Substance: LENALIDOMIDE
     Indication: Plasma cell myeloma
     Dosage: ONGOING
     Route: 048
     Dates: start: 20220317

REACTIONS (9)
  - Diarrhoea [Unknown]
  - Oedema peripheral [Unknown]
  - Peripheral swelling [Unknown]
  - Fatigue [Unknown]
  - Chest discomfort [Unknown]
  - Pruritus [Unknown]
  - Headache [Unknown]
  - Skin discolouration [Unknown]
  - Condition aggravated [Unknown]
